FAERS Safety Report 13509343 (Version 1)
Quarter: 2017Q2

REPORT INFORMATION
  Report Type: Spontaneous
  Country: US (occurrence: US)
  Receive Date: 20170503
  Receipt Date: 20170503
  Transmission Date: 20170830
  Serious: No
  Sender: FDA-Public Use
  Company Number: US-SA-2017SA016673

PATIENT
  Sex: Female

DRUGS (16)
  1. ISOSORBIDE MONONITRATE. [Concomitant]
     Active Substance: ISOSORBIDE MONONITRATE
     Dosage: STRENGTH: 30 MG
  2. NITROSTAT [Concomitant]
     Active Substance: NITROGLYCERIN
     Dosage: STRENGTH: 0.4 MG ROUTE: SUB
  3. AMOXICILLIN/CLAVULANATE POTASSIUM [Concomitant]
     Dosage: STRENGTH: 500-125
  4. CLONAZEPAM. [Concomitant]
     Active Substance: CLONAZEPAM
  5. CLOPIDOGREL [Concomitant]
     Active Substance: CLOPIDOGREL BISULFATE
     Dosage: STRENGTH: 75 MG
  6. DULOXETINE. [Concomitant]
     Active Substance: DULOXETINE
     Dosage: STRENGTH: 60 MG
  7. LORATADINE. [Concomitant]
     Active Substance: LORATADINE
     Dosage: STRENGTH: 10 MG
  8. TIZANIDINE. [Concomitant]
     Active Substance: TIZANIDINE
     Dosage: STRENGTH: 4 MG
  9. METOPROLOL. [Concomitant]
     Active Substance: METOPROLOL
     Dosage: STRENGTH: 50 MG
  10. ALIROCUMAB PREFILLED PEN [Concomitant]
     Active Substance: ALIROCUMAB
     Dates: start: 20161112
  11. ENOXAPARIN [Concomitant]
     Active Substance: ENOXAPARIN
     Dosage: STRENGTH: 1000MG/ML
  12. OMEPRAZOLE. [Concomitant]
     Active Substance: OMEPRAZOLE
     Dosage: STRENGTH: 40 MG
  13. LABETALOL [Concomitant]
     Active Substance: LABETALOL\LABETALOL HYDROCHLORIDE
     Dosage: STRENGTH: 100 MG
  14. PRALUENT [Suspect]
     Active Substance: ALIROCUMAB
     Route: 058
     Dates: start: 20161112
  15. RANEXA [Concomitant]
     Active Substance: RANOLAZINE
     Dosage: STRENGTH: 500 MG
  16. WARFARIN [Concomitant]
     Active Substance: WARFARIN
     Dosage: STRENGTH: 7.5 MG

REACTIONS (1)
  - Migraine [Recovered/Resolved]

NARRATIVE: CASE EVENT DATE: 2016
